FAERS Safety Report 6356071-9 (Version None)
Quarter: 2009Q3

REPORT INFORMATION
  Report Type: 
  Country: None (occurrence: None)
  Receive Date: 20090911
  Receipt Date: 20090911
  Transmission Date: 20100115
  Serious: Yes (Death, Life-Threatening, Hospitalization, Disabling, Other)
  Sender: FDA-Public Use
  Company Number: None

PATIENT
  Sex: Male
  Weight: 66.2252 kg

DRUGS (2)
  1. LEVAQUIN [Suspect]
     Dosage: 150ML/HR INFUSE OVER 90 MIN
     Dates: start: 20090806, end: 20090817
  2. LEVAQUIN [Suspect]

REACTIONS (10)
  - BLOOD POTASSIUM DECREASED [None]
  - CONVULSION [None]
  - DYSPNOEA [None]
  - JOINT SWELLING [None]
  - PYREXIA [None]
  - SWOLLEN TONGUE [None]
  - THROAT IRRITATION [None]
  - URINE COLOUR ABNORMAL [None]
  - URINE OUTPUT DECREASED [None]
  - YELLOW SKIN [None]
